FAERS Safety Report 6832595-2 (Version None)
Quarter: 2010Q3

REPORT INFORMATION
  Report Type: 
  Country: None (occurrence: None)
  Receive Date: 20100712
  Receipt Date: 20070518
  Transmission Date: 20110219
  Serious: No
  Sender: FDA-Public Use
  Company Number: US-PFIZER INC-2007020276

PATIENT
  Sex: Female
  Weight: 83.01 kg

DRUGS (5)
  1. CHANTIX [Suspect]
     Indication: SMOKING CESSATION THERAPY
     Route: 048
     Dates: start: 20070201
  2. MONTELUKAST SODIUM [Concomitant]
  3. FORADIL [Concomitant]
  4. TIOTROPIUM BROMIDE [Concomitant]
  5. PRILOSEC [Concomitant]

REACTIONS (5)
  - CRYING [None]
  - DEPRESSION [None]
  - IRRITABILITY [None]
  - MOOD SWINGS [None]
  - SINUSITIS [None]
